FAERS Safety Report 5655677-X (Version None)
Quarter: 2008Q1

REPORT INFORMATION
  Report Type: 
  Country: None (occurrence: None)
  Receive Date: 20080307
  Receipt Date: 20080229
  Transmission Date: 20080703
  Serious: No
  Sender: FDA-Public Use
  Company Number: US-BAXTER-2008BH000192

PATIENT
  Age: 34 Year
  Sex: Female
  Weight: 56 kg

DRUGS (21)
  1. HEPARIN SODIUM [Suspect]
     Indication: THROMBOSIS PROPHYLAXIS
     Route: 042
     Dates: start: 20071230, end: 20071230
  2. HEPARIN SODIUM [Suspect]
     Route: 042
     Dates: start: 20071230, end: 20071230
  3. HEPARIN SODIUM [Suspect]
     Route: 042
     Dates: start: 20071230, end: 20071230
  4. HEPARIN SODIUM [Suspect]
     Route: 042
     Dates: start: 20071230, end: 20071230
  5. HEPARIN SODIUM [Suspect]
     Route: 042
     Dates: start: 20071230, end: 20071230
  6. HEPARIN SODIUM [Suspect]
     Route: 042
     Dates: start: 20071230, end: 20071230
  7. HEPARIN SODIUM [Suspect]
     Route: 042
     Dates: start: 20071230, end: 20071230
  8. HEPARIN SODIUM [Suspect]
     Route: 042
     Dates: start: 20071230, end: 20071230
  9. HEPARIN SODIUM [Suspect]
     Route: 042
     Dates: start: 20071230, end: 20071230
  10. HEPARIN SODIUM [Suspect]
     Route: 042
     Dates: start: 20071230, end: 20071230
  11. HEPARIN SODIUM [Suspect]
     Route: 042
     Dates: start: 20071230, end: 20071230
  12. HEPARIN SODIUM [Suspect]
     Route: 042
     Dates: start: 20071230, end: 20071230
  13. HEPARIN SODIUM [Suspect]
     Route: 042
     Dates: start: 20071230, end: 20071230
  14. HEPARIN SODIUM [Suspect]
     Route: 042
     Dates: start: 20071230, end: 20071230
  15. HEPARIN SODIUM [Suspect]
     Route: 042
     Dates: start: 20071230, end: 20071230
  16. HEPARIN SODIUM [Suspect]
     Route: 042
     Dates: start: 20071230, end: 20071230
  17. ATENOLOL [Concomitant]
     Indication: DRUG USE FOR UNKNOWN INDICATION
     Route: 065
  18. LISIPRIL [Concomitant]
     Indication: DRUG USE FOR UNKNOWN INDICATION
     Route: 065
  19. MICRONOR [Concomitant]
     Indication: DRUG USE FOR UNKNOWN INDICATION
     Dosage: DOSE UNIT:UNKNOWN
     Route: 065
  20. CINACALET [Concomitant]
     Indication: DRUG USE FOR UNKNOWN INDICATION
     Route: 065
  21. SEVELAMER [Concomitant]
     Indication: DRUG USE FOR UNKNOWN INDICATION
     Route: 065

REACTIONS (5)
  - DRY MOUTH [None]
  - DYSPNOEA [None]
  - FLUSHING [None]
  - NAUSEA [None]
  - OCULAR HYPERAEMIA [None]
